FAERS Safety Report 6863575-9 (Version None)
Quarter: 2010Q3

REPORT INFORMATION
  Report Type: 
  Country: None (occurrence: None)
  Receive Date: 20100721
  Receipt Date: 20100712
  Transmission Date: 20110219
  Serious: Yes (Hospitalization)
  Sender: FDA-Public Use
  Company Number: ZA-ABBOTT-10P-143-0656771-00

PATIENT
  Sex: Female

DRUGS (2)
  1. HUMIRA [Suspect]
     Indication: RHEUMATOID ARTHRITIS
     Route: 058
  2. HUMULIN R [Suspect]
     Indication: PRODUCT USED FOR UNKNOWN INDICATION
     Dosage: STAT
     Route: 058

REACTIONS (10)
  - DRY SKIN [None]
  - EYE DISORDER [None]
  - HYPOGLYCAEMIA [None]
  - MEDICATION ERROR [None]
  - OEDEMA [None]
  - PALPITATIONS [None]
  - RASH [None]
  - ROSACEA [None]
  - SKIN DISCOLOURATION [None]
  - SKIN EXFOLIATION [None]
